FAERS Safety Report 23939618 (Version 1)
Quarter: 2024Q2

REPORT INFORMATION
  Report Type: Spontaneous
  Country: US (occurrence: US)
  Receive Date: 20240605
  Receipt Date: 20240605
  Transmission Date: 20240716
  Serious: No
  Sender: FDA-Public Use
  Company Number: US-OTSUKA-2022_028992

PATIENT
  Sex: Female
  Weight: 65.77 kg

DRUGS (4)
  1. SAMSCA [Suspect]
     Active Substance: TOLVAPTAN
     Indication: Inappropriate antidiuretic hormone secretion
     Dosage: 15 MG
     Route: 065
     Dates: start: 20220505, end: 20220506
  2. SAMSCA [Suspect]
     Active Substance: TOLVAPTAN
     Indication: Hyponatraemia
  3. VAPRISOL [Concomitant]
     Active Substance: CONIVAPTAN HYDROCHLORIDE
     Indication: Inappropriate antidiuretic hormone secretion
     Dosage: UNK
     Route: 065
     Dates: start: 20211121
  4. VAPRISOL [Concomitant]
     Active Substance: CONIVAPTAN HYDROCHLORIDE
     Indication: Hyponatraemia

REACTIONS (2)
  - Renal disorder [Unknown]
  - Product availability issue [Unknown]
